FAERS Safety Report 17884391 (Version 5)
Quarter: 2021Q1

REPORT INFORMATION
  Report Type: Spontaneous
  Country: US (occurrence: US)
  Receive Date: 20200611
  Receipt Date: 20210106
  Transmission Date: 20210419
  Serious: Yes (Other)
  Sender: FDA-Public Use
  Company Number: US-PFIZER INC-2020192118

PATIENT
  Age: 56 Year
  Sex: Female

DRUGS (3)
  1. XELJANZ XR [Suspect]
     Active Substance: TOFACITINIB CITRATE
     Indication: RHEUMATOID ARTHRITIS
     Dosage: 11 MG, 1X/DAY
     Route: 048
     Dates: start: 2015
  2. XELJANZ XR [Suspect]
     Active Substance: TOFACITINIB CITRATE
     Dosage: 11 MG, 1X/DAY
     Route: 048
     Dates: start: 202004, end: 20200606
  3. ARAVA [Concomitant]
     Active Substance: LEFLUNOMIDE
     Dosage: UNK

REACTIONS (3)
  - Wound infection [Recovering/Resolving]
  - Product use issue [Unknown]
  - Osteomyelitis [Unknown]

NARRATIVE: CASE EVENT DATE: 2020
